FAERS Safety Report 13898990 (Version 1)
Quarter: 2017Q3

REPORT INFORMATION
  Report Type: Spontaneous
  Country: US (occurrence: US)
  Receive Date: 20170824
  Receipt Date: 20170824
  Transmission Date: 20171127
  Serious: No
  Sender: FDA-Public Use
  Company Number: US-SUN PHARMACEUTICAL INDUSTRIES LTD-2017US-147385

PATIENT
  Age: 35 Year
  Sex: Female

DRUGS (1)
  1. BUPRENORPHINE. [Suspect]
     Active Substance: BUPRENORPHINE
     Indication: PRODUCT USED FOR UNKNOWN INDICATION
     Dosage: 2 DF, DAILY
     Route: 060
     Dates: start: 20170716

REACTIONS (9)
  - Product taste abnormal [Unknown]
  - Migraine [Unknown]
  - Nausea [Unknown]
  - Feeling abnormal [Unknown]
  - Oral discomfort [Unknown]
  - Fatigue [Unknown]
  - Product substitution issue [Unknown]
  - Apathy [Unknown]
  - Therapeutic response decreased [Unknown]

NARRATIVE: CASE EVENT DATE: 201707
